FAERS Safety Report 9201572 (Version 1)
Quarter: 2013Q2

REPORT INFORMATION
  Report Type: Spontaneous
  Country: US (occurrence: None)
  Receive Date: 20130401
  Receipt Date: 20130401
  Transmission Date: 20140414
  Serious: Yes (Death, Hospitalization)
  Sender: FDA-Public Use
  Company Number: None

PATIENT
  Age: 80 Year
  Sex: Male
  Weight: 81 kg

DRUGS (1)
  1. WARFARIN [Suspect]
     Dosage: 2.5 MG  UD  PO
     Route: 048
     Dates: start: 20121117, end: 20130119

REACTIONS (6)
  - International normalised ratio increased [None]
  - Fall [None]
  - Asthenia [None]
  - Subdural haematoma [None]
  - Hypotension [None]
  - Brain herniation [None]
